FAERS Safety Report 23999932 (Version 4)
Quarter: 2024Q4

REPORT INFORMATION
  Report Type: Spontaneous
  Country: US (occurrence: US)
  Receive Date: 20240621
  Receipt Date: 20241113
  Transmission Date: 20250115
  Serious: No
  Sender: PFIZER
  Company Number: US-PFIZER INC-202400193391

PATIENT
  Age: 14 Year
  Sex: Male

DRUGS (1)
  1. GENOTROPIN [Suspect]
     Active Substance: SOMATROPIN
     Dosage: 1.6 MG

REACTIONS (5)
  - Drug dose omission by device [Unknown]
  - Intentional product misuse [Unknown]
  - Device issue [Unknown]
  - Device breakage [Unknown]
  - Poor quality device used [Unknown]
